FAERS Safety Report 11751449 (Version 3)
Quarter: 2016Q1

REPORT INFORMATION
  Report Type: Spontaneous
  Country: US (occurrence: US)
  Receive Date: 20151118
  Receipt Date: 20160212
  Transmission Date: 20160525
  Serious: No
  Sender: FDA-Public Use
  Company Number: US-ASTRAZENECA-2015SF06542

PATIENT
  Age: 24566 Day
  Sex: Female
  Weight: 124.7 kg

DRUGS (2)
  1. BYDUREON [Suspect]
     Active Substance: EXENATIDE
     Indication: TYPE 2 DIABETES MELLITUS
     Route: 058
     Dates: start: 201511
  2. METFORMIN [Concomitant]
     Active Substance: METFORMIN HYDROCHLORIDE
     Indication: TYPE 2 DIABETES MELLITUS
     Route: 048

REACTIONS (5)
  - Body height decreased [Unknown]
  - Injection site pain [Unknown]
  - Injection site haemorrhage [Recovered/Resolved]
  - Product quality issue [Unknown]
  - Circumstance or information capable of leading to medication error [Unknown]

NARRATIVE: CASE EVENT DATE: 20151226
